FAERS Safety Report 8581417-0 (Version None)
Quarter: 2012Q3

REPORT INFORMATION
  Report Type: 
  Country: None (occurrence: None)
  Receive Date: 20120809
  Receipt Date: 20120801
  Transmission Date: 20120928
  Serious: Yes (Hospitalization)
  Sender: FDA-Public Use
  Company Number: US-BAYER-2012-079333

PATIENT
  Age: 36 Year
  Sex: Female

DRUGS (15)
  1. ABILIFY [Concomitant]
     Dosage: 2 MG, DAILY
     Route: 048
  2. LEXAPRO [Concomitant]
     Dosage: 20 MG, DAILY
     Route: 048
  3. LEVOTHYROXINE SODIUM [Concomitant]
     Dosage: UNK
  4. ANTI-ASTHMATICS [Concomitant]
     Indication: DYSPNOEA
     Dosage: 8.5 GM 2-3 PUFFS INHALED FOUR TIMES DAILY AS NEEDED
  5. HYDROMET SYRUP [Concomitant]
     Indication: COUGH
     Dosage: 5 ML, TWICE DAILY AS NEEDED
     Route: 048
  6. TAMIFLU [Concomitant]
     Dosage: 75 MG, BID FOR FIVE DAYS
     Route: 048
  7. YAZ [Suspect]
     Dosage: UNK
  8. DROSPIRENONE AND ETHINYL ESTRADIOL [Suspect]
     Dosage: UNK
     Dates: start: 20101214, end: 20110207
  9. AZITHROMYCIN [Concomitant]
     Dosage: 250 MG, 6-PAK
     Route: 048
  10. FLUTICASONE PROPIONATE [Concomitant]
     Dosage: 16 GM, 2 SPRAYS EACH NOSTRIL DAILY
     Route: 045
  11. SURFAK [Concomitant]
     Dosage: UNK
  12. ALPRAZOLAM [Concomitant]
     Dosage: 0.5 MG, DAILY
     Route: 048
  13. NORCO [Concomitant]
     Dosage: UNK
  14. PHENERGAN HCL [Concomitant]
     Dosage: UNK
  15. SYNTHROID [Concomitant]
     Dosage: 137 MCG, DAILY
     Route: 048

REACTIONS (1)
  - PULMONARY EMBOLISM [None]
